FAERS Safety Report 10274877 (Version 1)
Quarter: 2014Q3

REPORT INFORMATION
  Report Type: Spontaneous
  Country: US (occurrence: US)
  Receive Date: 20140702
  Receipt Date: 20140702
  Transmission Date: 20150326
  Serious: Yes (Hospitalization)
  Sender: FDA-Public Use
  Company Number: US-AMGEN INC.-USASP2014049147

PATIENT
  Age: 56 Year
  Sex: Female

DRUGS (1)
  1. ENBREL [Suspect]
     Active Substance: ETANERCEPT
     Indication: RHEUMATOID ARTHRITIS
     Dosage: 50 MG, QWK
     Route: 065
     Dates: start: 20111104

REACTIONS (6)
  - Musculoskeletal pain [Not Recovered/Not Resolved]
  - Mobility decreased [Recovered/Resolved]
  - Shoulder arthroplasty [Recovered/Resolved]
  - Procedural pain [Not Recovered/Not Resolved]
  - Visual acuity reduced [Not Recovered/Not Resolved]
  - Joint crepitation [Recovered/Resolved]

NARRATIVE: CASE EVENT DATE: 20140411
